FAERS Safety Report 7622771-3 (Version None)
Quarter: 2011Q3

REPORT INFORMATION
  Report Type: 
  Country: None (occurrence: None)
  Receive Date: 20110701
  Receipt Date: 20110121
  Transmission Date: 20111222
  Serious: Yes (Hospitalization)
  Sender: FDA-Public Use
  Company Number: 7037517

PATIENT
  Age: 61 Year
  Sex: Female
  Weight: 95 kg

DRUGS (15)
  1. METFORMIN HCL [Concomitant]
  2. PAXIL [Concomitant]
  3. SYNTHROID [Concomitant]
  4. TRAZODONE HCL [Concomitant]
  5. OXYCODONE HCL [Concomitant]
  6. REBIF [Suspect]
     Indication: MULTIPLE SCLEROSIS
     Dosage: 44 MCG, 3 IN 1 WK, SUBCUTANEOUS
     Route: 058
     Dates: start: 20080417
  7. SIMVASTATIN [Concomitant]
  8. GLIPIZIDE [Concomitant]
  9. ASPIRIN [Concomitant]
  10. LISINOPRIL/HYDROCHLOROTHIAZIDE (PRINZIDE /00977901/) [Concomitant]
  11. COREG [Concomitant]
  12. LORTAB 5/500 (VICODIN) [Concomitant]
  13. IRON (IRON) [Concomitant]
  14. NEURONTIN [Concomitant]
  15. STOOL SOFTENER (DOCUSATE SODIUM) [Concomitant]

REACTIONS (1)
  - MULTIPLE SCLEROSIS RELAPSE [None]
